FAERS Safety Report 11707352 (Version 1)
Quarter: 2015Q4

REPORT INFORMATION
  Report Type: Spontaneous
  Country: US (occurrence: US)
  Receive Date: 20151104
  Receipt Date: 20151104
  Transmission Date: 20160304
  Serious: No
  Sender: FDA-Public Use
  Company Number: US-ELI_LILLY_AND_COMPANY-US201102001705

PATIENT
  Age: 49 Year
  Sex: Male

DRUGS (2)
  1. CAFFEINE. [Concomitant]
     Active Substance: CAFFEINE
  2. FORTEO [Suspect]
     Active Substance: TERIPARATIDE
     Indication: OSTEOPOROSIS
     Dosage: 20 UG, DAILY (1/D)
     Dates: start: 20110127

REACTIONS (10)
  - Middle insomnia [Recovered/Resolved]
  - Somnolence [Recovered/Resolved]
  - Rash [Unknown]
  - Pruritus [Unknown]
  - Muscle spasms [Not Recovered/Not Resolved]
  - Abnormal dreams [Recovering/Resolving]
  - Night sweats [Recovered/Resolved]
  - Musculoskeletal stiffness [Unknown]
  - Pain [Unknown]
  - Tinnitus [Not Recovered/Not Resolved]

NARRATIVE: CASE EVENT DATE: 20110127
